FAERS Safety Report 6527482-3 (Version None)
Quarter: 2010Q1

REPORT INFORMATION
  Report Type: 
  Country: None (occurrence: None)
  Receive Date: 20100105
  Receipt Date: 20091111
  Transmission Date: 20100710
  Serious: Yes (Other)
  Sender: FDA-Public Use
  Company Number: US-PURDUE-USA-2009-0041048

PATIENT
  Sex: Female

DRUGS (1)
  1. OXYCONTIN [Suspect]
     Indication: ANALGESIC THERAPY
     Dosage: UNK
     Dates: start: 20010418, end: 20021215

REACTIONS (3)
  - DRUG DEPENDENCE [None]
  - GASTRIC DISORDER [None]
  - TOOTH LOSS [None]
